FAERS Safety Report 4765996-7 (Version None)
Quarter: 2005Q3

REPORT INFORMATION
  Report Type: 
  Country: None (occurrence: None)
  Receive Date: 20050912
  Receipt Date: 20050826
  Transmission Date: 20060218
  Serious: Yes (Other)
  Sender: FDA-Public Use
  Company Number: CA-GLAXOSMITHKLINE-A0572435A

PATIENT
  Age: 49 Year
  Sex: Male

DRUGS (5)
  1. ADVAIR DISKUS 100/50 [Suspect]
     Indication: ASTHMA
     Dosage: 250MCG TWICE PER DAY
     Route: 048
     Dates: end: 20050501
  2. FLONASE [Suspect]
     Indication: DRUG USE FOR UNKNOWN INDICATION
     Dosage: 100MCG TWICE PER DAY
     Route: 055
     Dates: end: 20050501
  3. RITONAVIR [Suspect]
     Indication: HIV INFECTION
     Route: 065
  4. ALBUTEROL SULFATE HFA [Concomitant]
  5. KALETRA [Concomitant]

REACTIONS (5)
  - ADRENAL SUPPRESSION [None]
  - BLOOD CORTICOTROPHIN [None]
  - BLOOD CORTISOL DECREASED [None]
  - DRUG EFFECT INCREASED [None]
  - DRUG INTERACTION [None]
